FAERS Safety Report 10177625 (Version 1)
Quarter: 2014Q2

REPORT INFORMATION
  Report Type: Spontaneous
  Country: US (occurrence: US)
  Receive Date: 20140516
  Receipt Date: 20140516
  Transmission Date: 20141212
  Serious: No
  Sender: FDA-Public Use
  Company Number: US-SA-2014SA026371

PATIENT
  Age: 62 Year
  Sex: Female
  Weight: 74.8 kg

DRUGS (5)
  1. SKLICE [Suspect]
     Indication: LICE INFESTATION
     Route: 003
  2. ALENDRONATE SODIUM [Concomitant]
     Dosage: 10MG = BONE DENSITY
  3. LEVOTHYROXINE [Concomitant]
     Indication: THYROID DISORDER
     Dates: start: 2009
  4. RANITIDINE [Concomitant]
     Indication: GASTROOESOPHAGEAL REFLUX DISEASE
     Dates: start: 2009
  5. METFORMIN HYDROCHLORIDE [Concomitant]
     Indication: DIABETES MELLITUS
     Dosage: FREQUENCY: MEAL TIME
     Dates: start: 201212

REACTIONS (1)
  - Drug ineffective [Unknown]
